FAERS Safety Report 5080033-5 (Version None)
Quarter: 2006Q3

REPORT INFORMATION
  Report Type: 
  Country: None (occurrence: None)
  Receive Date: 20060815
  Receipt Date: 20050822
  Transmission Date: 20061208
  Serious: Yes (Death, Hospitalization, Disabling)
  Sender: FDA-Public Use
  Company Number: 2005SE04760

PATIENT
  Age: 23717 Day
  Sex: Male
  Weight: 80 kg

DRUGS (11)
  1. BLOPRESS [Suspect]
     Indication: HYPERTENSION
     Route: 048
     Dates: start: 20020905, end: 20021225
  2. BLOPRESS [Suspect]
     Route: 048
     Dates: start: 20021226
  3. BASEN [Suspect]
     Indication: DIABETES MELLITUS NON-INSULIN-DEPENDENT
     Route: 048
     Dates: start: 20010521
  4. DAONIL [Suspect]
     Indication: DIABETES MELLITUS NON-INSULIN-DEPENDENT
     Route: 048
     Dates: start: 20000501
  5. AMLODIN [Suspect]
     Indication: HYPERTENSION
     Route: 048
     Dates: start: 20000215
  6. LIPITOR [Suspect]
     Indication: HYPERCHOLESTEROLAEMIA
     Route: 048
     Dates: start: 20020425
  7. POLARAMINE [Concomitant]
     Indication: PRURITUS GENERALISED
     Route: 048
     Dates: start: 19980701
  8. AM [Concomitant]
     Indication: GASTRITIS
     Route: 048
     Dates: start: 19980721
  9. HARNAL [Concomitant]
     Indication: DYSURIA
     Route: 048
     Dates: start: 20030828
  10. BUP-4 [Concomitant]
     Indication: POLLAKIURIA
     Route: 048
     Dates: start: 20030828
  11. EBRANTIL [Concomitant]
     Indication: DYSURIA
     Route: 048
     Dates: start: 20030828

REACTIONS (12)
  - CARDIAC FAILURE [None]
  - CARDIO-RESPIRATORY ARREST [None]
  - CONDITION AGGRAVATED [None]
  - CONSTIPATION [None]
  - DIABETIC NEPHROPATHY [None]
  - HYPERTENSION [None]
  - MICTURITION DISORDER [None]
  - NOCTURNAL DYSPNOEA [None]
  - OEDEMA PERIPHERAL [None]
  - PLEURAL EFFUSION [None]
  - RENAL IMPAIRMENT [None]
  - WEIGHT INCREASED [None]
